FAERS Safety Report 17028621 (Version 1)
Quarter: 2019Q4

REPORT INFORMATION
  Report Type: Spontaneous
  Country: GR (occurrence: GR)
  Receive Date: 20191113
  Receipt Date: 20191113
  Transmission Date: 20200122
  Serious: Yes (Other)
  Sender: FDA-Public Use
  Company Number: GR-BAXTER-2019BAX022329

PATIENT
  Age: 46 Year
  Sex: Female

DRUGS (6)
  1. CEFUROXIME. [Suspect]
     Active Substance: CEFUROXIME
     Indication: PELVIC ABSCESS
     Route: 065
  2. METRONIDAZOLE/BAXTER SOLUTION FOR INTRAVENOUS INFUSION 500 MG/100 ML [Suspect]
     Active Substance: METRONIDAZOLE\SODIUM CHLORIDE
     Indication: PELVIC ABSCESS
     Route: 065
  3. CEFUROXIME. [Suspect]
     Active Substance: CEFUROXIME
     Indication: PELVIC INFLAMMATORY DISEASE
     Dosage: 750 MG, TID
     Route: 065
  4. DOXYCYCLINE. [Suspect]
     Active Substance: DOXYCYCLINE
     Indication: PELVIC INFLAMMATORY DISEASE
     Dosage: 100 MG, BID
     Route: 048
  5. METRONIDAZOLE/BAXTER SOLUTION FOR INTRAVENOUS INFUSION 500 MG/100 ML [Suspect]
     Active Substance: METRONIDAZOLE\SODIUM CHLORIDE
     Indication: PELVIC INFLAMMATORY DISEASE
     Dosage: 500 MG, TID
     Route: 042
  6. DOXYCYCLINE. [Suspect]
     Active Substance: DOXYCYCLINE
     Indication: PELVIC ABSCESS
     Route: 065

REACTIONS (4)
  - Condition aggravated [Recovered/Resolved]
  - Pelvic inflammatory disease [Recovered/Resolved]
  - Drug ineffective [Unknown]
  - Pelvic abscess [Recovered/Resolved]
